FAERS Safety Report 20700749 (Version 5)
Quarter: 2022Q2

REPORT INFORMATION
  Report Type: Report from Study
  Country: US (occurrence: US)
  Receive Date: 20220412
  Receipt Date: 20220617
  Transmission Date: 20220721
  Serious: No
  Sender: FDA-Public Use
  Company Number: US-NOVARTISTESTPH-NVSC2022US082903

PATIENT
  Sex: Male

DRUGS (2)
  1. ENTRESTO [Suspect]
     Active Substance: SACUBITRIL\VALSARTAN
     Indication: Product used for unknown indication
     Dosage: 1 DOSAGE FORM, BID (24/26 MG)
     Route: 048
     Dates: start: 202109
  2. ENTRESTO [Suspect]
     Active Substance: SACUBITRIL\VALSARTAN
     Dosage: 2 DOSAGE FORM, BID (24/26MG)
     Route: 048

REACTIONS (11)
  - Blood pressure abnormal [Unknown]
  - Hypoaesthesia [Unknown]
  - General physical health deterioration [Unknown]
  - Feeling cold [Unknown]
  - Peripheral vascular disorder [Unknown]
  - Food poisoning [Recovering/Resolving]
  - Pain in extremity [Unknown]
  - Malaise [Unknown]
  - Sluggishness [Unknown]
  - Depression [Unknown]
  - Incorrect dose administered [Unknown]
